FAERS Safety Report 11935706 (Version 1)
Quarter: 2016Q1

REPORT INFORMATION
  Report Type: Spontaneous
  Country: US (occurrence: US)
  Receive Date: 20160121
  Receipt Date: 20160121
  Transmission Date: 20160526
  Serious: No
  Sender: FDA-Public Use
  Company Number: US-BAYER-2016-010911

PATIENT
  Age: 65 Year
  Sex: Female
  Weight: 79.37 kg

DRUGS (2)
  1. OXYTROL FOR WOMEN [Suspect]
     Active Substance: OXYBUTYNIN
     Indication: INFECTION
  2. OXYTROL FOR WOMEN [Suspect]
     Active Substance: OXYBUTYNIN
     Indication: HYPERTONIC BLADDER
     Dosage: 1 DF, EVERY 4 DAYS
     Route: 061
     Dates: start: 20150103, end: 20150301

REACTIONS (4)
  - Application site pruritus [Recovered/Resolved]
  - Application site erythema [Recovered/Resolved]
  - Application site rash [None]
  - Product use issue [None]

NARRATIVE: CASE EVENT DATE: 2015
